FAERS Safety Report 7172473-5 (Version None)
Quarter: 2010Q4

REPORT INFORMATION
  Report Type: 
  Country: None (occurrence: None)
  Receive Date: 20101217
  Receipt Date: 20100210
  Transmission Date: 20110411
  Serious: No
  Sender: FDA-Public Use
  Company Number: US-AMGEN-KDL392038

PATIENT

DRUGS (6)
  1. ENBREL [Suspect]
     Indication: RHEUMATOID ARTHRITIS
     Dosage: 50 MG, QWK
  2. DEXTROPROPOXYPHENE HYDROCHLORIDE [Concomitant]
     Dosage: UNK UNK, UNK
  3. DULOXETIME HYDROCHLORIDE [Concomitant]
     Dosage: UNK UNK, UNK
  4. DEXTROPROPOXYPHENE NAPSILATE W/ ACETAMINOPHEN [Concomitant]
     Dosage: UNK UNK, UNK
  5. ALPRAZOLAM [Concomitant]
     Dosage: UNK UNK, UNK
  6. PREDNISONE [Concomitant]
     Dosage: UNK UNK, UNK

REACTIONS (3)
  - CANDIDIASIS [None]
  - PNEUMONIA [None]
  - SINUSITIS [None]
